FAERS Safety Report 23827629 (Version 1)
Quarter: 2024Q2

REPORT INFORMATION
  Report Type: Spontaneous
  Country: GB (occurrence: GB)
  Receive Date: 20240507
  Receipt Date: 20240507
  Transmission Date: 20240716
  Serious: Yes (Hospitalization)
  Sender: FDA-Public Use
  Company Number: GB-CMP PHARMA-2024CMP00013

PATIENT
  Age: 46 Year
  Sex: Male

DRUGS (2)
  1. AMLODIPINE [Suspect]
     Active Substance: AMLODIPINE BESYLATE
     Dosage: 250 MG
     Route: 048
  2. ALCOHOL [Suspect]
     Active Substance: ALCOHOL
     Route: 048

REACTIONS (3)
  - Myocarditis [Recovered/Resolved]
  - Overdose [Recovered/Resolved]
  - Pulmonary oedema [Recovered/Resolved]
